FAERS Safety Report 13763933 (Version 1)
Quarter: 2017Q3

REPORT INFORMATION
  Report Type: Spontaneous
  Country: CN (occurrence: CN)
  Receive Date: 20170718
  Receipt Date: 20170718
  Transmission Date: 20171127
  Serious: Yes (Other)
  Sender: FDA-Public Use
  Company Number: CN-B.I. PHARMACEUTICALS,INC./RIDGEFIELD-2017-BI-038940

PATIENT
  Age: 67 Year
  Sex: Female
  Weight: 59 kg

DRUGS (2)
  1. ATROVENT [Suspect]
     Active Substance: IPRATROPIUM BROMIDE
     Indication: BRONCHITIS CHRONIC
     Route: 055
     Dates: start: 20170519, end: 20170525
  2. PULMICORT TURBUHALER [Suspect]
     Active Substance: BUDESONIDE
     Indication: BRONCHITIS CHRONIC
     Route: 055
     Dates: start: 20170519, end: 20170525

REACTIONS (5)
  - Dry throat [Unknown]
  - Oedema mouth [Recovered/Resolved]
  - Tongue paralysis [Recovering/Resolving]
  - Dry mouth [Unknown]
  - Throat irritation [Unknown]

NARRATIVE: CASE EVENT DATE: 20170522
